FAERS Safety Report 19072333 (Version 1)
Quarter: 2021Q1

REPORT INFORMATION
  Report Type: Spontaneous
  Country: US (occurrence: US)
  Receive Date: 20210329
  Receipt Date: 20210329
  Transmission Date: 20210420
  Serious: Yes (Hospitalization, Disabling, Other)
  Sender: FDA-Public Use
  Company Number: None

PATIENT
  Age: 44 Year
  Sex: Female
  Weight: 90 kg

DRUGS (1)
  1. IVERMECTIN. [Suspect]
     Active Substance: IVERMECTIN

REACTIONS (20)
  - Feeding disorder [None]
  - Haematochezia [None]
  - Blood urine present [None]
  - Pain of skin [None]
  - Skin burning sensation [None]
  - Abdominal pain lower [None]
  - Hypoaesthesia [None]
  - Livedo reticularis [None]
  - Depressed level of consciousness [None]
  - Atelectasis [None]
  - Vomiting [None]
  - Gastrointestinal wall thickening [None]
  - Ulcer [None]
  - Petechiae [None]
  - Discomfort [None]
  - Tinnitus [None]
  - Fatigue [None]
  - Nausea [None]
  - Protein urine present [None]
  - Narcolepsy [None]

NARRATIVE: CASE EVENT DATE: 20181107
